FAERS Safety Report 19078468 (Version 2)
Quarter: 2021Q2

REPORT INFORMATION
  Report Type: Report from Study
  Country: US (occurrence: US)
  Receive Date: 20210331
  Receipt Date: 20210426
  Transmission Date: 20210717
  Serious: Yes (Hospitalization, Other)
  Sender: FDA-Public Use
  Company Number: US-MALLINCKRODT PHARMACEUTICALS-T201905631

PATIENT
  Age: 62 Year
  Sex: Female
  Weight: 58 kg

DRUGS (8)
  1. METHOTREXATE. [Suspect]
     Active Substance: METHOTREXATE
     Indication: PRODUCT USED FOR UNKNOWN INDICATION
     Dosage: UNK
     Route: 065
  2. REPOSITORY CORTICOTROPIN INJECTION [Suspect]
     Active Substance: CORTICOTROPIN
     Dosage: 80 UNITS/1 MILLILITER, TWICE A WEEK
     Route: 058
     Dates: start: 2019, end: 202006
  3. REPOSITORY CORTICOTROPIN INJECTION [Suspect]
     Active Substance: CORTICOTROPIN
     Dosage: 80 UNITS ONCE A WEEK
     Route: 058
     Dates: start: 202006, end: 202102
  4. PREDNISONE. [Suspect]
     Active Substance: PREDNISONE
     Dosage: UNK (HALF PILL DAILY)
     Route: 065
  5. REPOSITORY CORTICOTROPIN INJECTION [Suspect]
     Active Substance: CORTICOTROPIN
     Dosage: 80 UNITS/1 MILLILITER, TWICE A WEEK
     Route: 058
     Dates: start: 20190923, end: 2019
  6. PREDNISONE. [Suspect]
     Active Substance: PREDNISONE
     Dosage: HALF PILL EVERY OTHER DAY
     Route: 065
  7. REPOSITORY CORTICOTROPIN INJECTION [Suspect]
     Active Substance: CORTICOTROPIN
     Indication: SARCOIDOSIS
     Dosage: 80 UNITS/1 MILLILITER, TWICE A WEEK
     Route: 058
     Dates: start: 20190718, end: 201908
  8. PREDNISONE. [Suspect]
     Active Substance: PREDNISONE
     Indication: PRODUCT USED FOR UNKNOWN INDICATION
     Dosage: 5 MILLIGRAM
     Route: 065

REACTIONS (24)
  - Condition aggravated [Not Recovered/Not Resolved]
  - Feeling abnormal [Not Recovered/Not Resolved]
  - Mood altered [Not Recovered/Not Resolved]
  - Wrong technique in product usage process [Unknown]
  - Sarcoidosis [Not Recovered/Not Resolved]
  - Taste disorder [Not Recovered/Not Resolved]
  - Nodule [Not Recovered/Not Resolved]
  - Treatment noncompliance [Unknown]
  - COVID-19 [Recovering/Resolving]
  - Appendicectomy [Unknown]
  - Sensation of foreign body [Not Recovered/Not Resolved]
  - Cough [Not Recovered/Not Resolved]
  - Abdominal pain lower [Unknown]
  - Back pain [Unknown]
  - Dyschezia [Unknown]
  - Fear of injection [Not Recovered/Not Resolved]
  - Colon operation [Unknown]
  - Pulmonary mass [Unknown]
  - Intestinal obstruction [Unknown]
  - Glycosylated haemoglobin increased [Not Recovered/Not Resolved]
  - Weight increased [Unknown]
  - Mass excision [Unknown]
  - Dysphagia [Not Recovered/Not Resolved]
  - Injection site hypertrophy [Unknown]

NARRATIVE: CASE EVENT DATE: 2019
